FAERS Safety Report 10713544 (Version 1)
Quarter: 2015Q1

REPORT INFORMATION
  Report Type: Spontaneous
  Country: FI (occurrence: FI)
  Receive Date: 20150115
  Receipt Date: 20150115
  Transmission Date: 20150721
  Serious: Yes (Other)
  Sender: FDA-Public Use
  Company Number: FI-MYLANLABS-2015M1000556

PATIENT

DRUGS (1)
  1. CLARITHROMYCIN. [Suspect]
     Active Substance: CLARITHROMYCIN
     Indication: SINUSITIS
     Route: 065

REACTIONS (1)
  - Colitis [Recovered/Resolved]
